FAERS Safety Report 24589761 (Version 1)
Quarter: 2024Q4

REPORT INFORMATION
  Report Type: Spontaneous
  Country: US (occurrence: US)
  Receive Date: 20241107
  Receipt Date: 20241107
  Transmission Date: 20250114
  Serious: No
  Sender: BLUEPRINT MEDICINES
  Company Number: US-Blueprint Medicines Corporation-5212

PATIENT
  Age: 34 Year
  Sex: Female

DRUGS (1)
  1. AYVAKIT [Suspect]
     Active Substance: AVAPRITINIB
     Indication: Systemic mastocytosis
     Route: 065
     Dates: start: 20240617

REACTIONS (4)
  - Depressed mood [Unknown]
  - Anxiety [Recovered/Resolved]
  - Loss of personal independence in daily activities [Unknown]
  - Symptom recurrence [Unknown]
